FAERS Safety Report 23554049 (Version 1)
Quarter: 2024Q1

REPORT INFORMATION
  Report Type: Spontaneous
  Country: US (occurrence: None)
  Receive Date: 20240222
  Receipt Date: 20240222
  Transmission Date: 20240409
  Serious: Yes (Other)
  Sender: FDA-Public Use
  Company Number: None

PATIENT
  Age: 71 Year
  Sex: Male

DRUGS (6)
  1. LAMOTRIGINE [Suspect]
     Active Substance: LAMOTRIGINE
     Indication: Bipolar disorder
     Dosage: FREQUENCY : DAILY;?
     Route: 048
     Dates: start: 20231007, end: 20240119
  2. LATUDA [Suspect]
     Active Substance: LURASIDONE HYDROCHLORIDE
     Dates: start: 20231103, end: 20231222
  3. LATUDA [Concomitant]
     Active Substance: LURASIDONE HYDROCHLORIDE
     Dates: start: 20240112
  4. LITHIUM [Concomitant]
     Active Substance: LITHIUM
     Dates: start: 20240105, end: 20240205
  5. MELOXICAM [Concomitant]
     Active Substance: MELOXICAM
     Dates: start: 20231201
  6. PREDNISONE [Concomitant]
     Active Substance: PREDNISONE
     Dates: start: 20231117, end: 20231201

REACTIONS (7)
  - Myalgia [None]
  - Pain in extremity [None]
  - Arthralgia [None]
  - Neck pain [None]
  - Pain in extremity [None]
  - Muscle spasms [None]
  - Sleep disorder [None]

NARRATIVE: CASE EVENT DATE: 20231221
